FAERS Safety Report 4338842-3 (Version None)
Quarter: 2004Q2

REPORT INFORMATION
  Report Type: 
  Country: None (occurrence: None)
  Receive Date: 20040409
  Receipt Date: 20040331
  Transmission Date: 20050107
  Serious: Yes (Hospitalization)
  Sender: FDA-Public Use
  Company Number: K200400065

PATIENT
  Age: 67 Year
  Sex: Male

DRUGS (3)
  1. ALTACE [Suspect]
     Indication: HYPERTENSION
     Dosage: 5 MG QD, ORAL
     Route: 048
     Dates: start: 20030830, end: 20030901
  2. ESCITALOPRAM (ESCITALOPRAM) TABLET [Concomitant]
  3. CARDIOASPIRINE (ACETYLSALICYLIC ACID) TABLET [Concomitant]

REACTIONS (2)
  - ASTHMA [None]
  - BRONCHOSPASM [None]
